FAERS Safety Report 7071434-4 (Version None)
Quarter: 2010Q4

REPORT INFORMATION
  Report Type: 
  Country: None (occurrence: None)
  Receive Date: 20101029
  Receipt Date: 20090901
  Transmission Date: 20110411
  Serious: No
  Sender: FDA-Public Use
  Company Number: A0805357A

PATIENT
  Age: 41 Year
  Sex: Female

DRUGS (2)
  1. ADVAIR DISKUS 100/50 [Suspect]
     Indication: ASTHMA
     Dosage: 1PUFF TWICE PER DAY
     Route: 055
     Dates: start: 20090601, end: 20090801
  2. NO CONCURRENT MEDICATION [Concomitant]

REACTIONS (12)
  - ALOPECIA [None]
  - ASTHENIA [None]
  - BEDRIDDEN [None]
  - CHILLS [None]
  - CONSTIPATION [None]
  - EYE PAIN [None]
  - FATIGUE [None]
  - HEART RATE INCREASED [None]
  - INSOMNIA [None]
  - JOINT STIFFNESS [None]
  - MYALGIA [None]
  - PAIN [None]
